FAERS Safety Report 23149697 (Version 1)
Quarter: 2023Q4

REPORT INFORMATION
  Report Type: Spontaneous
  Country: IT (occurrence: IT)
  Receive Date: 20231106
  Receipt Date: 20231106
  Transmission Date: 20240110
  Serious: Yes (Life-Threatening, Hospitalization, Other)
  Sender: FDA-Public Use
  Company Number: IT-ROCHE-3040524

PATIENT
  Age: 54 Year
  Sex: Female

DRUGS (3)
  1. MYCOPHENOLATE MOFETIL [Suspect]
     Active Substance: MYCOPHENOLATE MOFETIL
     Indication: Neuromyelitis optica spectrum disorder
     Dosage: 2 GRAM, QD
     Route: 065
  2. RITUXIMAB [Suspect]
     Active Substance: RITUXIMAB
     Indication: Neuromyelitis optica spectrum disorder
     Dosage: UNK
     Route: 065
     Dates: start: 2019
  3. TOCILIZUMAB [Suspect]
     Active Substance: TOCILIZUMAB
     Indication: Neuromyelitis optica spectrum disorder
     Dosage: UNK
     Route: 065

REACTIONS (13)
  - Anaphylactic shock [Unknown]
  - Quadriparesis [Unknown]
  - Central nervous system lesion [Unknown]
  - Hemiplegia [Unknown]
  - Aphasia [Unknown]
  - Septic shock [Unknown]
  - Varicella zoster virus infection [Unknown]
  - Serum sickness [Unknown]
  - Drug specific antibody present [Unknown]
  - Treatment failure [Unknown]
  - Gastrointestinal disorder [Unknown]
  - Pyrexia [Unknown]
  - Off label use [Unknown]

NARRATIVE: CASE EVENT DATE: 20210101
